FAERS Safety Report 24622451 (Version 1)
Quarter: 2024Q4

REPORT INFORMATION
  Report Type: Spontaneous
  Country: US (occurrence: US)
  Receive Date: 20241115
  Receipt Date: 20241115
  Transmission Date: 20250115
  Serious: Yes (Other)
  Sender: UCB
  Company Number: US-UCBSA-2024058481

PATIENT
  Sex: Male

DRUGS (1)
  1. ZILBRYSQ [Suspect]
     Active Substance: ZILUCOPLAN
     Indication: Product used for unknown indication
     Dosage: UNK

REACTIONS (2)
  - Myasthenia gravis [Unknown]
  - Product storage error [Unknown]
